FAERS Safety Report 5727193-8 (Version None)
Quarter: 2008Q2

REPORT INFORMATION
  Report Type: 
  Country: None (occurrence: None)
  Receive Date: 20080505
  Receipt Date: 20080422
  Transmission Date: 20081010
  Serious: Yes (Hospitalization)
  Sender: FDA-Public Use
  Company Number: PHHO2008DE05227

PATIENT
  Age: 50 Year
  Sex: Female

DRUGS (1)
  1. MYCOPHENOLIC ACID [Suspect]
     Indication: RENAL TRANSPLANT
     Dosage: 720 MG / DAY
     Route: 048

REACTIONS (7)
  - BLOOD CREATININE INCREASED [None]
  - CLOSTRIDIAL INFECTION [None]
  - CYTOMEGALOVIRUS INFECTION [None]
  - DIARRHOEA [None]
  - GASTROENTERITIS NOROVIRUS [None]
  - RENAL FAILURE ACUTE [None]
  - URINARY TRACT INFECTION [None]
